FAERS Safety Report 7961155-5 (Version None)
Quarter: 2011Q4

REPORT INFORMATION
  Report Type: 
  Country: None (occurrence: None)
  Receive Date: 20111202
  Receipt Date: 20111129
  Transmission Date: 20120403
  Serious: Yes (Hospitalization)
  Sender: FDA-Public Use
  Company Number: CPI 2874

PATIENT
  Age: 21 Year
  Sex: Female
  Weight: 70 kg

DRUGS (5)
  1. ACETADOTE [Suspect]
     Dosage: 17.5G/500ML OVER 4HRS IV
     Route: 042
  2. MONTELUKAST SODIUM [Concomitant]
  3. SERTRALINE HYDROCHLORIDE [Concomitant]
  4. VENLAFAXINE [Concomitant]
  5. ACETADOTE [Suspect]
     Dosage: 52.5G/500ML OVER 1HR IV
     Route: 042

REACTIONS (11)
  - HAEMOLYTIC URAEMIC SYNDROME [None]
  - DYSPNOEA [None]
  - HYPOTENSION [None]
  - TRANSAMINASES INCREASED [None]
  - RENAL FAILURE ACUTE [None]
  - HAEMODIALYSIS [None]
  - INCORRECT DOSE ADMINISTERED [None]
  - HAEMATOCRIT DECREASED [None]
  - INFUSION RELATED REACTION [None]
  - OVERDOSE [None]
  - HAEMOGLOBIN DECREASED [None]
